FAERS Safety Report 21118159 (Version 7)
Quarter: 2023Q2

REPORT INFORMATION
  Report Type: Spontaneous
  Country: US (occurrence: US)
  Receive Date: 20220722
  Receipt Date: 20230505
  Transmission Date: 20230722
  Serious: No
  Sender: FDA-Public Use
  Company Number: US-BIOGEN-2022BI01141100

PATIENT
  Sex: Female

DRUGS (2)
  1. TECFIDERA [Suspect]
     Active Substance: DIMETHYL FUMARATE
     Indication: Product used for unknown indication
     Route: 050
     Dates: start: 2022
  2. TECFIDERA [Suspect]
     Active Substance: DIMETHYL FUMARATE
     Route: 050

REACTIONS (13)
  - Product prescribing error [Unknown]
  - Osteoarthritis [Unknown]
  - Bursitis [Unknown]
  - Insomnia [Unknown]
  - Multiple sclerosis relapse [Unknown]
  - Back disorder [Unknown]
  - Constipation [Unknown]
  - Haemorrhoids [Unknown]
  - Seasonal allergy [Unknown]
  - Peroneal nerve palsy [Unknown]
  - Pain [Unknown]
  - Fall [Recovered/Resolved]
  - Feeling hot [Unknown]

NARRATIVE: CASE EVENT DATE: 20220101
